FAERS Safety Report 5006761-5 (Version None)
Quarter: 2006Q2

REPORT INFORMATION
  Report Type: 
  Country: None (occurrence: None)
  Receive Date: 20060516
  Receipt Date: 20060503
  Transmission Date: 20061013
  Serious: Yes (Hospitalization)
  Sender: FDA-Public Use
  Company Number: 2005EU002534

PATIENT
  Age: 40 Year
  Sex: Male

DRUGS (6)
  1. FK506 (TACROLIMUS) CAPSULE [Suspect]
     Indication: LIVER TRANSPLANT
     Dosage: 3.00 MG, BID, ORAL
     Route: 048
     Dates: start: 20050421
  2. PREDNISOLONE [Suspect]
     Indication: LIVER TRANSPLANT
     Dosage: 7.5 MG, UID/QD, ORAL
     Route: 048
     Dates: start: 20050422
  3. METHYLPREDNISOLONE [Suspect]
     Indication: LIVER TRANSPLANT
     Dosage: 500.00 MG, BID
     Dates: start: 20050421, end: 20050715
  4. AMPICILLIN SODIUM [Concomitant]
  5. OMEPRAZOLE [Concomitant]
  6. PIPERACILLIN [Concomitant]

REACTIONS (5)
  - BLOOD BILIRUBIN INCREASED [None]
  - CHILLS [None]
  - NAUSEA [None]
  - PYREXIA [None]
  - TOOTH ABSCESS [None]
